FAERS Safety Report 13814348 (Version 1)
Quarter: 2017Q3

REPORT INFORMATION
  Report Type: Spontaneous
  Country: US (occurrence: US)
  Receive Date: 20170728
  Receipt Date: 20170728
  Transmission Date: 20171127
  Serious: Yes (Other)
  Sender: FDA-Public Use
  Company Number: None

PATIENT
  Age: 80 Year
  Sex: Female
  Weight: 77 kg

DRUGS (12)
  1. ATENOLOL. [Concomitant]
     Active Substance: ATENOLOL
  2. CYCLOPHOSPHAMIDE. [Concomitant]
     Active Substance: CYCLOPHOSPHAMIDE
  3. FUROSEMIDE. [Concomitant]
     Active Substance: FUROSEMIDE
  4. NINLARO [Suspect]
     Active Substance: IXAZOMIB
     Indication: PLASMA CELL MYELOMA
     Dosage: ?          OTHER FREQUENCY:EVERY 7 DAYS;?
     Route: 048
     Dates: start: 20170501, end: 20170728
  5. VELCADE [Concomitant]
     Active Substance: BORTEZOMIB
  6. SIMVASTATIN. [Concomitant]
     Active Substance: SIMVASTATIN
  7. REVLIMID [Concomitant]
     Active Substance: LENALIDOMIDE
  8. LOSARTAN. [Concomitant]
     Active Substance: LOSARTAN
  9. RANITIDINE. [Concomitant]
     Active Substance: RANITIDINE
  10. ACYCLOVIR. [Concomitant]
     Active Substance: ACYCLOVIR
  11. LORATADINE. [Concomitant]
     Active Substance: LORATADINE
  12. BACTRIM [Concomitant]
     Active Substance: SULFAMETHOXAZOLE\TRIMETHOPRIM

REACTIONS (1)
  - Disease progression [None]

NARRATIVE: CASE EVENT DATE: 20170710
